FAERS Safety Report 7574685-5 (Version None)
Quarter: 2011Q2

REPORT INFORMATION
  Report Type: 
  Country: None (occurrence: None)
  Receive Date: 20110627
  Receipt Date: 20110131
  Transmission Date: 20111010
  Serious: Yes (Hospitalization, Other)
  Sender: FDA-Public Use
  Company Number: US-BAYER-201021845NA

PATIENT
  Age: 34 Year
  Sex: Female
  Weight: 63.492 kg

DRUGS (8)
  1. IBUPROFEN [Concomitant]
     Dosage: UNK
     Dates: start: 20090102
  2. PHENTERMINE [Concomitant]
     Dosage: UNK
     Dates: start: 20070920, end: 20071204
  3. YASMIN [Suspect]
     Indication: ORAL CONTRACEPTION
  4. YAZ [Suspect]
     Indication: ORAL CONTRACEPTION
     Dosage: UNK UNK, UNK
     Route: 048
  5. MIRALAX [Concomitant]
     Indication: CONSTIPATION
     Dosage: UNK
     Dates: start: 20070101, end: 20090101
  6. ADIPEX [Concomitant]
     Indication: WEIGHT DECREASED
  7. CELESTONE [Concomitant]
  8. MIRALAX [Concomitant]
     Dosage: UNK
     Dates: start: 20060817

REACTIONS (9)
  - GALLBLADDER CHOLESTEROLOSIS [None]
  - CHEST PAIN [None]
  - GALLBLADDER DISORDER [None]
  - CHOLELITHIASIS [None]
  - DIARRHOEA [None]
  - HYPOKALAEMIA [None]
  - ABDOMINAL PAIN [None]
  - CHOLECYSTITIS CHRONIC [None]
  - VOMITING [None]
